FAERS Safety Report 6765140-0 (Version None)
Quarter: 2010Q2

REPORT INFORMATION
  Report Type: 
  Country: None (occurrence: None)
  Receive Date: 20100609
  Receipt Date: 20100609
  Transmission Date: 20101027
  Serious: No
  Sender: FDA-Public Use
  Company Number: None

PATIENT
  Age: 32 Year
  Sex: Female
  Weight: 61.2356 kg

DRUGS (2)
  1. FLAGYL [Suspect]
     Indication: INFECTION
     Dosage: 500  MG TWICE DAILY PO
     Route: 048
     Dates: start: 20100514, end: 20100523
  2. MIDRIN NA NA [Suspect]
     Indication: HEADACHE
     Dosage: 2 AT HEADACHE ONSE PO
     Route: 048

REACTIONS (1)
  - NIGHTMARE [None]
